FAERS Safety Report 7148995-X (Version None)
Quarter: 2010Q4

REPORT INFORMATION
  Report Type: 
  Country: None (occurrence: None)
  Receive Date: 20101209
  Receipt Date: 20101129
  Transmission Date: 20110411
  Serious: Yes (Life-Threatening)
  Sender: FDA-Public Use
  Company Number: IT-ABBOTT-10P-083-0685139-00

PATIENT
  Sex: Female

DRUGS (5)
  1. VERCITE [Suspect]
     Indication: POLYCYTHAEMIA VERA
     Route: 048
     Dates: start: 20051109, end: 20100501
  2. CHEMOTHERAPY [Suspect]
     Indication: PRODUCT USED FOR UNKNOWN INDICATION
  3. TICLID [Concomitant]
     Indication: THROMBOSIS PROPHYLAXIS
     Route: 048
  4. ELOPRAM [Concomitant]
     Indication: DEPRESSION
     Route: 048
     Dates: start: 20050101
  5. MINIAS [Concomitant]
     Indication: DEPRESSION
     Dates: start: 20050101

REACTIONS (2)
  - ANAEMIA [None]
  - BREAST CANCER [None]
